FAERS Safety Report 16768549 (Version 2)
Quarter: 2019Q4

REPORT INFORMATION
  Report Type: Spontaneous
  Country: US (occurrence: US)
  Receive Date: 20190903
  Receipt Date: 20191011
  Transmission Date: 20200122
  Serious: Yes (Other)
  Sender: FDA-Public Use
  Company Number: US-THE MENTHOLATUM COMPANY-2073963

PATIENT
  Sex: Female

DRUGS (1)
  1. ROHTO BEAUTY SECRET [Suspect]
     Active Substance: NAPHAZOLINE HYDROCHLORIDE\POLYSORBATE 80
     Indication: ERYTHEMA
     Route: 047
     Dates: start: 20190827

REACTIONS (1)
  - Cyst [Not Recovered/Not Resolved]
